FAERS Safety Report 6085621-5 (Version None)
Quarter: 2009Q1

REPORT INFORMATION
  Report Type: 
  Country: None (occurrence: None)
  Receive Date: 20090220
  Receipt Date: 20090217
  Transmission Date: 20090719
  Serious: Yes (Death)
  Sender: FDA-Public Use
  Company Number: BE-ABBOTT-09P-013-0557656-00

PATIENT
  Sex: Male
  Weight: 70 kg

DRUGS (5)
  1. LUCRIN TRI-DEPOT [Suspect]
     Indication: PROSTATE CANCER
     Dates: start: 20070404
  2. BICALUTAMIDE [Concomitant]
     Indication: DRUG USE FOR UNKNOWN INDICATION
     Dates: start: 20070321, end: 20070417
  3. ZOMETA [Concomitant]
     Indication: DRUG USE FOR UNKNOWN INDICATION
     Dates: start: 20070518
  4. CYPROTERONE ACETATE [Concomitant]
     Indication: DRUG USE FOR UNKNOWN INDICATION
     Dates: start: 20071001
  5. TAXOTERE [Concomitant]
     Indication: DRUG USE FOR UNKNOWN INDICATION
     Dates: start: 20071026

REACTIONS (4)
  - COMA [None]
  - DEPRESSED LEVEL OF CONSCIOUSNESS [None]
  - HEADACHE [None]
  - SUBDURAL HAEMATOMA [None]
